FAERS Safety Report 10067444 (Version 2)
Quarter: 2014Q4

REPORT INFORMATION
  Report Type: Spontaneous
  Country: JP (occurrence: None)
  Receive Date: 20140407
  Receipt Date: 20141014
  Transmission Date: 20150528
  Serious: Yes (Other)
  Sender: FDA-Public Use
  Company Number: JP-015173

PATIENT
  Age: 65 Year
  Sex: Male
  Weight: 66.7 kg

DRUGS (2)
  1. DEGARELIX [Suspect]
     Active Substance: DEGARELIX
     Indication: PROSTATE CANCER
     Dosage: (80 MG CYCLICAL)
     Dates: start: 20130531, end: 20130531
  2. BICALUTAMIDE. [Concomitant]
     Active Substance: BICALUTAMIDE

REACTIONS (5)
  - Aspartate aminotransferase increased [None]
  - Hepatic function abnormal [None]
  - Diabetes mellitus [None]
  - Alanine aminotransferase increased [None]
  - Intentional product use issue [None]

NARRATIVE: CASE EVENT DATE: 20130531
